FAERS Safety Report 17783845 (Version 2)
Quarter: 2021Q1

REPORT INFORMATION
  Report Type: Other
  Country: ZA (occurrence: ZA)
  Receive Date: 20200513
  Receipt Date: 20210129
  Transmission Date: 20210419
  Serious: Yes (Other)
  Sender: FDA-Public Use
  Company Number: ZA-ROCHE-2600319

PATIENT
  Age: 60 Year
  Sex: Male

DRUGS (1)
  1. LUCENTIS [Suspect]
     Active Substance: RANIBIZUMAB
     Indication: DIABETIC RETINAL OEDEMA
     Route: 047
     Dates: start: 20191218

REACTIONS (4)
  - Retinal thickening [Unknown]
  - Subretinal fluid [Unknown]
  - Eye oedema [Unknown]
  - Retinal oedema [Unknown]

NARRATIVE: CASE EVENT DATE: 20200225
